FAERS Safety Report 13457014 (Version 2)
Quarter: 2017Q2

REPORT INFORMATION
  Report Type: Spontaneous
  Country: DE (occurrence: DE)
  Receive Date: 20170419
  Receipt Date: 20170426
  Transmission Date: 20170830
  Serious: Yes (Other)
  Sender: FDA-Public Use
  Company Number: DE-MEDA-2017040023

PATIENT
  Age: 20 Year
  Sex: Male

DRUGS (1)
  1. DYMISTA [Suspect]
     Active Substance: AZELASTINE HYDROCHLORIDE\FLUTICASONE PROPIONATE
     Indication: VIRAL UPPER RESPIRATORY TRACT INFECTION
     Route: 045
     Dates: start: 20170313, end: 20170316

REACTIONS (3)
  - Asthenia [Recovering/Resolving]
  - Hypotonia [Recovering/Resolving]
  - Dizziness [Recovering/Resolving]

NARRATIVE: CASE EVENT DATE: 20170314
